FAERS Safety Report 25600496 (Version 1)
Quarter: 2025Q3

REPORT INFORMATION
  Report Type: Spontaneous
  Country: CN (occurrence: CN)
  Receive Date: 20250724
  Receipt Date: 20250724
  Transmission Date: 20251020
  Serious: Yes (Other)
  Sender: BAXTER
  Company Number: None

PATIENT
  Age: 46 Year
  Sex: Female
  Weight: 67 kg

DRUGS (4)
  1. CYCLOPHOSPHAMIDE [Suspect]
     Active Substance: CYCLOPHOSPHAMIDE
     Indication: Breast cancer female
     Dosage: 0.95 G, QD, IVGTT, D1
     Route: 041
     Dates: start: 20250627, end: 20250627
  2. DEXTROSE [Suspect]
     Active Substance: DEXTROSE MONOHYDRATE
     Indication: Medication dilution
     Dosage: 600 ML, QD, 5% GLUCOSE INJECTION, IVGTT, D1 WITH PACLITAXEL LIPOSOME
     Route: 041
     Dates: start: 20250627, end: 20250627
  3. SODIUM CHLORIDE [Suspect]
     Active Substance: SODIUM CHLORIDE
     Indication: Medication dilution
     Dosage: 50 ML, QD, 0.9% SODIUM CHLORIDE IVGTT, D1 WITH CYCLOPHOSPHAMIDE
     Route: 041
     Dates: start: 20250627, end: 20250627
  4. PACLITAXEL [Suspect]
     Active Substance: PACLITAXEL
     Indication: Breast cancer female
     Dosage: 210 MG, QD, IVGTT, D1
     Route: 041
     Dates: start: 20250627, end: 20250627

REACTIONS (1)
  - Cholestatic liver injury [Unknown]

NARRATIVE: CASE EVENT DATE: 20250716
